FAERS Safety Report 25235426 (Version 1)
Quarter: 2025Q2

REPORT INFORMATION
  Report Type: Report from Study
  Country: US (occurrence: US)
  Receive Date: 20250424
  Receipt Date: 20250424
  Transmission Date: 20250717
  Serious: Yes (Hospitalization, Other)
  Sender: ABBVIE
  Company Number: US-ABBVIE-6237884

PATIENT
  Age: 75 Year
  Sex: Female

DRUGS (1)
  1. SKYRIZI [Suspect]
     Active Substance: RISANKIZUMAB-RZAA
     Indication: Crohn^s disease
     Route: 042
     Dates: start: 20250128, end: 20250327

REACTIONS (4)
  - Intestinal perforation [Recovering/Resolving]
  - Abdominal pain [Recovering/Resolving]
  - Bacteraemia [Recovering/Resolving]
  - Procedural dizziness [Unknown]

NARRATIVE: CASE EVENT DATE: 20250301
